FAERS Safety Report 6381524-7 (Version None)
Quarter: 2009Q3

REPORT INFORMATION
  Report Type: 
  Country: None (occurrence: None)
  Receive Date: 20090925
  Receipt Date: 20090917
  Transmission Date: 20100115
  Serious: Yes (Life-Threatening)
  Sender: FDA-Public Use
  Company Number: CN-JNJFOC-20090905337

PATIENT
  Age: 38 Year
  Sex: Female
  Weight: 69 kg

DRUGS (1)
  1. DECITABINE (DECITABINE) LYOPHILIZED POWDER [Suspect]
     Indication: MYELODYSPLASTIC SYNDROME
     Dosage: 26.55 MG, 1 IN 8 HOUR, INTRAVENOUS
     Route: 042
     Dates: start: 20090831, end: 20090902

REACTIONS (7)
  - CONVERSION DISORDER [None]
  - DIZZINESS [None]
  - ECCHYMOSIS [None]
  - EPILEPSY [None]
  - FALL [None]
  - LOSS OF CONSCIOUSNESS [None]
  - URINARY INCONTINENCE [None]
